FAERS Safety Report 22168122 (Version 6)
Quarter: 2025Q3

REPORT INFORMATION
  Report Type: Report from Study
  Country: CA (occurrence: CA)
  Receive Date: 20230403
  Receipt Date: 20250828
  Transmission Date: 20251020
  Serious: Yes (Other)
  Sender: TAKEDA
  Company Number: CA-TAKEDA-2016TUS020799

PATIENT
  Age: 74 Year
  Sex: Female

DRUGS (14)
  1. VEDOLIZUMAB [Suspect]
     Active Substance: VEDOLIZUMAB
     Indication: Crohn^s disease
  2. VEDOLIZUMAB [Suspect]
     Active Substance: VEDOLIZUMAB
  3. VEDOLIZUMAB [Suspect]
     Active Substance: VEDOLIZUMAB
  4. VEDOLIZUMAB [Suspect]
     Active Substance: VEDOLIZUMAB
     Dosage: 300 MILLIGRAM, Q4WEEKS
     Dates: start: 20180502
  5. VEDOLIZUMAB [Suspect]
     Active Substance: VEDOLIZUMAB
     Dosage: 300 MILLIGRAM, Q4WEEKS
  6. VEDOLIZUMAB [Suspect]
     Active Substance: VEDOLIZUMAB
  7. VEDOLIZUMAB [Suspect]
     Active Substance: VEDOLIZUMAB
  8. VEDOLIZUMAB [Suspect]
     Active Substance: VEDOLIZUMAB
  9. VEDOLIZUMAB [Suspect]
     Active Substance: VEDOLIZUMAB
     Dosage: 300 MILLIGRAM, Q4WEEKS
     Dates: start: 20250820
  10. PREDNISONE [Concomitant]
     Active Substance: PREDNISONE
  11. BUTRANS [Concomitant]
     Active Substance: BUPRENORPHINE
  12. SULFATRIM [Concomitant]
     Active Substance: SULFAMETHOXAZOLE\TRIMETHOPRIM
  13. FOLIC ACID [Concomitant]
     Active Substance: FOLIC ACID
  14. TRAMADOL [Concomitant]
     Active Substance: TRAMADOL

REACTIONS (9)
  - Crohn^s disease [Recovered/Resolved]
  - Intestinal mass [Unknown]
  - Off label use [Unknown]
  - Drug ineffective [Unknown]
  - Blood pressure abnormal [Unknown]
  - Blood pressure decreased [Unknown]
  - Dizziness [Unknown]
  - Constipation [Unknown]
  - Arthralgia [Unknown]

NARRATIVE: CASE EVENT DATE: 20250820
